FAERS Safety Report 24264122 (Version 1)
Quarter: 2024Q3

REPORT INFORMATION
  Report Type: Spontaneous
  Country: US (occurrence: US)
  Receive Date: 20240829
  Receipt Date: 20240829
  Transmission Date: 20241016
  Serious: Yes (Other)
  Sender: BRISTOL MYERS SQUIBB
  Company Number: US-BRISTOL-MYERS SQUIBB COMPANY-2024-133465

PATIENT
  Age: 62 Year
  Sex: Male
  Weight: 58.51 kg

DRUGS (3)
  1. OPDUALAG [Suspect]
     Active Substance: NIVOLUMAB\RELATLIMAB
     Indication: Metastatic ocular melanoma
     Dosage: DOSE : ^STANDARD DOSE^;     FREQ : ONCE EVERY 4 WEEKS
     Route: 042
     Dates: start: 202401, end: 202403
  2. PROPRANOLOL [Concomitant]
     Active Substance: PROPRANOLOL HYDROCHLORIDE
     Indication: Blood pressure measurement
  3. OLMESARTAN [Concomitant]
     Active Substance: OLMESARTAN
     Indication: Blood pressure measurement

REACTIONS (10)
  - Diarrhoea [Recovered/Resolved]
  - Colitis microscopic [Recovered/Resolved]
  - Pancreatic failure [Recovered/Resolved]
  - Anaemia [Recovered/Resolved]
  - Oral pain [Recovered/Resolved]
  - Blood blister [Unknown]
  - Contusion [Unknown]
  - Weight decreased [Unknown]
  - Fatigue [Unknown]
  - Decreased appetite [Unknown]

NARRATIVE: CASE EVENT DATE: 20240201
